FAERS Safety Report 7888905-0 (Version None)
Quarter: 2011Q4

REPORT INFORMATION
  Report Type: 
  Country: None (occurrence: None)
  Receive Date: 20111103
  Receipt Date: 20111028
  Transmission Date: 20120403
  Serious: Yes (Other)
  Sender: FDA-Public Use
  Company Number: US-AMGEN-USASP2011054069

PATIENT
  Sex: Female

DRUGS (1)
  1. ENBREL [Suspect]
     Indication: RHEUMATOID ARTHRITIS
     Dosage: 50 MG, QWK
     Dates: start: 20030101

REACTIONS (7)
  - BLOOD ELECTROLYTES ABNORMAL [None]
  - ANAEMIA [None]
  - SINUSITIS [None]
  - PULMONARY HYPERTENSION [None]
  - FALL [None]
  - FATIGUE [None]
  - DRUG INEFFECTIVE [None]
